FAERS Safety Report 5453703-4 (Version None)
Quarter: 2007Q3

REPORT INFORMATION
  Report Type: 
  Country: None (occurrence: None)
  Receive Date: 20070917
  Receipt Date: 20070907
  Transmission Date: 20080115
  Serious: Yes (Hospitalization)
  Sender: FDA-Public Use
  Company Number: FR-AVENTIS-200712872FR

PATIENT
  Age: 76 Year
  Sex: Female
  Weight: 70 kg

DRUGS (9)
  1. FLAGYL [Suspect]
     Route: 048
     Dates: start: 20070614, end: 20070626
  2. PREVISCAN                          /00789001/ [Suspect]
     Route: 048
     Dates: start: 20070603, end: 20070611
  3. PREVISCAN                          /00789001/ [Suspect]
     Route: 048
     Dates: start: 20070612
  4. TAHOR [Concomitant]
     Route: 048
  5. POTASSIUM CHLORIDE [Concomitant]
     Route: 048
  6. CALCIUM WITH VITAMIN D             /01233101/ [Concomitant]
     Route: 048
  7. LASILIX                            /00032601/ [Concomitant]
     Route: 048
  8. CLAFORAN [Concomitant]
     Dates: start: 20070602, end: 20070612
  9. ROVAMYCINE                         /00074401/ [Concomitant]
     Dates: start: 20070602, end: 20070612

REACTIONS (2)
  - DRUG INTERACTION [None]
  - INTERNATIONAL NORMALISED RATIO INCREASED [None]
